FAERS Safety Report 9989035 (Version 1)
Quarter: 2014Q1

REPORT INFORMATION
  Report Type: Report from Study
  Country: US (occurrence: US)
  Receive Date: 20140310
  Receipt Date: 20140310
  Transmission Date: 20141002
  Serious: No
  Sender: FDA-Public Use
  Company Number: US-ABBVIE-13P-163-1128778-00

PATIENT
  Age: 65 Year
  Sex: Female

DRUGS (3)
  1. HUMIRA [Suspect]
     Indication: CROHN^S DISEASE
     Dates: start: 201210
  2. ARMOUR THYROID [Concomitant]
     Indication: THYROID DISORDER
  3. CALCITONIN [Concomitant]
     Indication: OSTEOPOROSIS
     Route: 045

REACTIONS (1)
  - Injection site pain [Not Recovered/Not Resolved]
